FAERS Safety Report 7472704-8 (Version None)
Quarter: 2011Q2

REPORT INFORMATION
  Report Type: 
  Country: None (occurrence: None)
  Receive Date: 20110511
  Receipt Date: 20110503
  Transmission Date: 20111010
  Serious: Yes (Other)
  Sender: FDA-Public Use
  Company Number: US-CEPHALON-2011002187

PATIENT
  Age: 50 Year
  Sex: Male

DRUGS (1)
  1. NUVIGIL [Suspect]
     Route: 048
     Dates: start: 20100401, end: 20100701

REACTIONS (1)
  - PARANOIA [None]
